FAERS Safety Report 17502802 (Version 5)
Quarter: 2020Q3

REPORT INFORMATION
  Report Type: Spontaneous
  Country: US (occurrence: US)
  Receive Date: 20200305
  Receipt Date: 20200714
  Transmission Date: 20201102
  Serious: Yes (Death, Hospitalization)
  Sender: FDA-Public Use
  Company Number: US-VERTEX PHARMACEUTICALS-2020-004038

PATIENT
  Age: 48 Year
  Sex: Female
  Weight: 40 kg

DRUGS (2)
  1. TRIKAFTA [Suspect]
     Active Substance: ELEXACAFTOR\IVACAFTOR\TEZACAFTOR
     Dosage: 1 ORANGE TAB 1 BLUE TAB PM
     Route: 048
     Dates: end: 20200621
  2. TRIKAFTA [Suspect]
     Active Substance: ELEXACAFTOR\IVACAFTOR\TEZACAFTOR
     Indication: CYSTIC FIBROSIS
     Dosage: 2 TABS (100MG ELEXACAFTOR/50MG TEZACAFTOR/75MG IVACAFTOR) AM AND 1 TAB (150MG IVACAFTOR) PM
     Route: 048
     Dates: start: 20191203

REACTIONS (5)
  - Internal haemorrhage [Unknown]
  - Pneumothorax [Unknown]
  - Pulmonary resection [Unknown]
  - Death [Fatal]
  - Renal impairment [Unknown]

NARRATIVE: CASE EVENT DATE: 2020
